FAERS Safety Report 16738328 (Version 3)
Quarter: 2019Q3

REPORT INFORMATION
  Report Type: Spontaneous
  Country: JP (occurrence: JP)
  Receive Date: 20190825
  Receipt Date: 20190927
  Transmission Date: 20191005
  Serious: Yes (Other)
  Sender: FDA-Public Use
  Company Number: JP-AMGEN-JPNSP2019135929

PATIENT
  Age: 9 Decade
  Sex: Female

DRUGS (2)
  1. ROMIPLATE [Suspect]
     Active Substance: ROMIPLOSTIM
     Indication: APLASTIC ANAEMIA
     Dosage: 10 MICROGRAM/KILOGRAM
     Route: 058
     Dates: start: 20190627
  2. ROMIPLATE [Suspect]
     Active Substance: ROMIPLOSTIM
     Dosage: 15 MICROGRAM/KILOGRAM
     Route: 058
     Dates: end: 20190801

REACTIONS (1)
  - Blast cell count increased [Recovering/Resolving]

NARRATIVE: CASE EVENT DATE: 20190808
